FAERS Safety Report 4747976-0 (Version None)
Quarter: 2005Q3

REPORT INFORMATION
  Report Type: 
  Country: None (occurrence: None)
  Receive Date: 20050817
  Receipt Date: 20050817
  Transmission Date: 20060218
  Serious: Yes (Hospitalization)
  Sender: FDA-Public Use
  Company Number: None

PATIENT
  Sex: Male
  Weight: 67 kg

DRUGS (5)
  1. ERLOTINIB [Suspect]
     Indication: COLON CANCER METASTATIC
     Dosage: 100MG QD ORAL
     Route: 048
     Dates: start: 20050708
  2. FLUOROURACIL [Suspect]
     Indication: COLON CANCER METASTATIC
     Dosage: 400 IV BOLUS
     Route: 040
     Dates: start: 20050708, end: 20050722
  3. OXALIPLATIN (85 MG/M2) D1+D15/21D CYCLE [Suspect]
     Indication: COLON CANCER METASTATIC
     Dosage: 85 IV
     Route: 042
     Dates: start: 20050708, end: 20050722
  4. BEVACIZUMAB (5MG/KG) D1+D15/21 D CYCLE [Suspect]
     Indication: COLON CANCER METASTATIC
     Dosage: 5 MG/KG IV
     Route: 042
     Dates: start: 20050708, end: 20050722
  5. FLUOROURACIL [Suspect]
     Indication: COLON CANCER METASTATIC
     Dosage: 2400 IV
     Route: 042
     Dates: start: 20050708, end: 20050722

REACTIONS (2)
  - SMALL INTESTINAL OBSTRUCTION [None]
  - VOMITING [None]
